FAERS Safety Report 8638425 (Version 2)
Quarter: 2013Q4

REPORT INFORMATION
  Report Type: Spontaneous
  Country: MT (occurrence: MT)
  Receive Date: 20120627
  Receipt Date: 20131022
  Transmission Date: 20140711
  Serious: Yes (Other)
  Sender: FDA-Public Use
  Company Number: MT-GLAXOSMITHKLINE-B0810857A

PATIENT
  Age: 61 Year
  Sex: Male

DRUGS (4)
  1. COMBODART [Suspect]
     Indication: PRODUCT USED FOR UNKNOWN INDICATION
     Route: 065
  2. COVERSYL [Concomitant]
     Indication: HYPERTENSION
     Dosage: 10MG PER DAY
     Route: 065
  3. METFORMIN [Concomitant]
     Indication: DIABETES MELLITUS
     Dosage: 500MG THREE TIMES PER DAY
     Route: 065
  4. LESCOL [Concomitant]
     Indication: BLOOD CHOLESTEROL
     Dosage: 8MG PER DAY
     Route: 065

REACTIONS (1)
  - Retinal haemorrhage [Recovered/Resolved]
